FAERS Safety Report 14986418 (Version 3)
Quarter: 2018Q4

REPORT INFORMATION
  Report Type: Spontaneous
  Country: JP (occurrence: JP)
  Receive Date: 20180607
  Receipt Date: 20181114
  Transmission Date: 20190204
  Serious: Yes (Life-Threatening, Other)
  Sender: FDA-Public Use
  Company Number: JP-AMGEN-JPNSP2018077154

PATIENT
  Age: 51 Year
  Sex: Female
  Weight: 53 kg

DRUGS (3)
  1. ENBREL [Suspect]
     Active Substance: ETANERCEPT
     Indication: RHEUMATOID ARTHRITIS
     Dosage: 25 MG, WEEKLY
     Route: 058
     Dates: start: 20080426, end: 20170831
  2. ENBREL [Suspect]
     Active Substance: ETANERCEPT
     Dosage: 50 MG, WEEKLY
     Route: 058
     Dates: start: 20180113, end: 20180620
  3. ACTEMRA [Suspect]
     Active Substance: TOCILIZUMAB
     Indication: RHEUMATOID ARTHRITIS
     Dosage: 162 MG, Q2WK
     Route: 058
     Dates: start: 20170906, end: 20180106

REACTIONS (5)
  - Product use issue [Unknown]
  - Therapeutic response decreased [Unknown]
  - Osteoporosis [Not Recovered/Not Resolved]
  - Colon cancer [Recovered/Resolved]
  - Glaucoma [Not Recovered/Not Resolved]

NARRATIVE: CASE EVENT DATE: 20080426
